FAERS Safety Report 12831105 (Version 2)
Quarter: 2017Q1

REPORT INFORMATION
  Report Type: Spontaneous
  Country: US (occurrence: US)
  Receive Date: 20161007
  Receipt Date: 20170111
  Transmission Date: 20170428
  Serious: No
  Sender: FDA-Public Use
  Company Number: US-ARBOR PHARMACEUTICALS, LLC-US-2016ARB000328

PATIENT

DRUGS (2)
  1. EVEKEO [Suspect]
     Active Substance: AMPHETAMINE SULFATE
     Indication: PRODUCT USED FOR UNKNOWN INDICATION
     Dosage: UNK, QD
  2. EVEKEO [Suspect]
     Active Substance: AMPHETAMINE SULFATE
     Dosage: UNK, NOON DOSING

REACTIONS (3)
  - Unevaluable event [Unknown]
  - Product quality issue [Unknown]
  - Drug effect decreased [Unknown]
